FAERS Safety Report 9735782 (Version 1)
Quarter: 2013Q4

REPORT INFORMATION
  Report Type: Spontaneous
  Country: US (occurrence: US)
  Receive Date: 20131206
  Receipt Date: 20131206
  Transmission Date: 20140711
  Serious: No
  Sender: FDA-Public Use
  Company Number: US-GILEAD-2009-0023086

PATIENT
  Sex: Female
  Weight: 59.87 kg

DRUGS (12)
  1. LETAIRIS [Suspect]
     Indication: PULMONARY ARTERIAL HYPERTENSION
     Route: 048
     Dates: start: 20090524
  2. DIOVAN [Concomitant]
  3. NIFEDIPINE [Concomitant]
  4. FAMOTIDINE [Concomitant]
  5. FOSAMAX [Concomitant]
  6. PEPCID [Concomitant]
  7. PRILOSEC [Concomitant]
  8. ECK EYE DROPS [Concomitant]
  9. OCUVITE [Concomitant]
  10. ONE-A-DAY WOMEN^S [Concomitant]
  11. VITAMIN D [Concomitant]
  12. CALCIUM CITRATE [Concomitant]

REACTIONS (3)
  - Dizziness [Unknown]
  - Fall [Unknown]
  - Local swelling [Unknown]
